FAERS Safety Report 23175462 (Version 3)
Quarter: 2024Q1

REPORT INFORMATION
  Report Type: Spontaneous
  Country: JP (occurrence: JP)
  Receive Date: 20231113
  Receipt Date: 20240226
  Transmission Date: 20240410
  Serious: Yes (Hospitalization, Other)
  Sender: FDA-Public Use
  Company Number: JP-SA-2023SA342831

PATIENT
  Age: 74 Year
  Sex: Male
  Weight: 68 kg

DRUGS (9)
  1. DUPIXENT [Suspect]
     Active Substance: DUPILUMAB
     Indication: Dermatitis atopic
     Dosage: 600 MG, 1X
     Route: 058
     Dates: start: 20230215, end: 20230215
  2. DUPIXENT [Suspect]
     Active Substance: DUPILUMAB
     Indication: Asthma
     Dosage: 300 MG, QOW
     Route: 058
     Dates: start: 20230301, end: 20230429
  3. INSULIN NOS [Suspect]
     Active Substance: INSULIN NOS
     Indication: Type 1 diabetes mellitus
     Dosage: UNK
     Route: 065
     Dates: start: 202305
  4. AMLODIPINE BESYLATE [Concomitant]
     Active Substance: AMLODIPINE BESYLATE
     Indication: Hypertension
     Dosage: 1 DF, QD
     Route: 048
  5. OLMESARTAN MEDOXOMIL [Concomitant]
     Active Substance: OLMESARTAN MEDOXOMIL
     Indication: Hypertension
     Dosage: 1 DF, QD
     Route: 048
  6. TAMSULOSIN HYDROCHLORIDE [Concomitant]
     Active Substance: TAMSULOSIN HYDROCHLORIDE
     Indication: Product used for unknown indication
     Dosage: 1 DF, QD
     Route: 048
  7. VONOPRAZAN FUMARATE [Concomitant]
     Active Substance: VONOPRAZAN FUMARATE
     Indication: Product used for unknown indication
     Dosage: 1 DF, QD
     Route: 048
  8. CELECOXIB [Concomitant]
     Active Substance: CELECOXIB
     Indication: Spinal stenosis
     Dosage: 1 DF, BID
     Route: 048
  9. PREGABALIN [Concomitant]
     Active Substance: PREGABALIN
     Indication: Spinal stenosis
     Dosage: 1 DF, BID
     Route: 048

REACTIONS (5)
  - Type 1 diabetes mellitus [Recovered/Resolved with Sequelae]
  - Thirst [Recovered/Resolved with Sequelae]
  - Weight decreased [Recovered/Resolved with Sequelae]
  - Glucose tolerance impaired [Recovered/Resolved with Sequelae]
  - Hypoglycaemia [Not Recovered/Not Resolved]

NARRATIVE: CASE EVENT DATE: 20230401
